FAERS Safety Report 19434028 (Version 2)
Quarter: 2023Q2

REPORT INFORMATION
  Report Type: Spontaneous
  Country: US (occurrence: None)
  Receive Date: 20210617
  Receipt Date: 20230517
  Transmission Date: 20230722
  Serious: No
  Sender: FDA-Public Use
  Company Number: US-ROCHE-2593999

PATIENT
  Sex: Female

DRUGS (2)
  1. ACTEMRA [Suspect]
     Active Substance: TOCILIZUMAB
     Indication: Rheumatoid arthritis
     Dosage: STRENGTH: 400MG/20ML
     Route: 042
     Dates: start: 201805
  2. ACTEMRA [Suspect]
     Active Substance: TOCILIZUMAB
     Dosage: STRENGTH: 80MG/4ML
     Route: 042
     Dates: start: 201805

REACTIONS (1)
  - Hair growth abnormal [Unknown]
